FAERS Safety Report 8995544 (Version 1)
Quarter: 2013Q1

REPORT INFORMATION
  Report Type: Spontaneous
  Country: US (occurrence: US)
  Receive Date: 20130103
  Receipt Date: 20130103
  Transmission Date: 20140127
  Serious: No
  Sender: FDA-Public Use
  Company Number: US-ABBOTT-12P-163-1025216-00

PATIENT
  Sex: Male
  Weight: 93.07 kg

DRUGS (4)
  1. LEVOTHYROXINE [Suspect]
     Indication: HYPOTHYROIDISM
     Dates: start: 2007
  2. LEVOTHYROXINE [Suspect]
     Indication: HYPOTHYROIDISM
     Dates: end: 201103
  3. LEVOTHYROXINE [Suspect]
     Dosage: BREAK THE TABLET IN HALF AND TAKE HALF TABLET DAILY
     Dates: start: 201206, end: 201208
  4. LEVOTHYROXINE [Suspect]
     Dosage: TAKE TWO AND A HALF TABLETS DAILY
     Dates: start: 201208

REACTIONS (12)
  - Ocular hyperaemia [Not Recovered/Not Resolved]
  - Headache [Not Recovered/Not Resolved]
  - Dyspnoea [Not Recovered/Not Resolved]
  - Decreased appetite [Not Recovered/Not Resolved]
  - Tremor [Not Recovered/Not Resolved]
  - Diarrhoea [Not Recovered/Not Resolved]
  - Gastrooesophageal reflux disease [Recovered/Resolved]
  - Heart rate increased [Not Recovered/Not Resolved]
  - Nausea [Not Recovered/Not Resolved]
  - Pyrexia [Not Recovered/Not Resolved]
  - Weight fluctuation [Not Recovered/Not Resolved]
  - Oesophagitis [Recovered/Resolved]
